FAERS Safety Report 21923417 (Version 2)
Quarter: 2025Q2

REPORT INFORMATION
  Report Type: Spontaneous
  Country: US (occurrence: US)
  Receive Date: 20230129
  Receipt Date: 20250528
  Transmission Date: 20250717
  Serious: No
  Sender: CIPLA
  Company Number: US-CIPLA LTD.-2022US06362

PATIENT

DRUGS (3)
  1. ALBUTEROL [Suspect]
     Active Substance: ALBUTEROL
     Indication: Asthma exercise induced
     Dates: start: 2022
  2. ALBUTEROL [Suspect]
     Active Substance: ALBUTEROL
     Dates: start: 20221019
  3. ALBUTEROL [Suspect]
     Active Substance: ALBUTEROL
     Dates: start: 20221019

REACTIONS (9)
  - Incorrect dose administered by device [Unknown]
  - Device delivery system issue [Unknown]
  - Device malfunction [Unknown]
  - Device mechanical issue [Unknown]
  - Device ineffective [Unknown]
  - Device maintenance issue [Unknown]
  - Product cleaning inadequate [Unknown]
  - Product container seal issue [Unknown]
  - Product substitution issue [Unknown]

NARRATIVE: CASE EVENT DATE: 20220101
